FAERS Safety Report 4373781-3 (Version None)
Quarter: 2004Q2

REPORT INFORMATION
  Report Type: 
  Country: None (occurrence: None)
  Receive Date: 20040607
  Receipt Date: 20040607
  Transmission Date: 20050107
  Serious: Yes (Disabling)
  Sender: FDA-Public Use
  Company Number: None

PATIENT
  Age: 19 Year
  Sex: Male
  Weight: 74.8435 kg

DRUGS (1)
  1. ZOLOFT [Suspect]
     Dosage: 250 MG

REACTIONS (2)
  - DRUG DEPENDENCE [None]
  - FEELING ABNORMAL [None]
